FAERS Safety Report 9194210 (Version 3)
Quarter: 2013Q4

REPORT INFORMATION
  Report Type: Spontaneous
  Country: GB (occurrence: GB)
  Receive Date: 20130327
  Receipt Date: 20131016
  Transmission Date: 20140711
  Serious: Yes (Other)
  Sender: FDA-Public Use
  Company Number: GB-WATSON-2013-05340

PATIENT
  Sex: Male

DRUGS (3)
  1. NAPROXEN (UNKNOWN) [Suspect]
     Indication: HERNIA PAIN
     Dosage: 250 MG, DAILY
     Route: 065
     Dates: start: 20120706
  2. NAPROXEN (UNKNOWN) [Suspect]
     Dosage: 250 MG, BID
     Route: 065
  3. TRAMADOL [Concomitant]
     Indication: PRODUCT USED FOR UNKNOWN INDICATION
     Dosage: UNK, UNKNOWN
     Route: 065

REACTIONS (2)
  - Suicidal ideation [Recovered/Resolved]
  - Depression [Recovered/Resolved]
